FAERS Safety Report 4817586-5 (Version None)
Quarter: 2005Q4

REPORT INFORMATION
  Report Type: 
  Country: None (occurrence: None)
  Receive Date: 20051031
  Receipt Date: 20051017
  Transmission Date: 20060501
  Serious: Yes (Hospitalization)
  Sender: FDA-Public Use
  Company Number: RENA-11508

PATIENT
  Age: 48 Year
  Sex: Male
  Weight: 80 kg

DRUGS (11)
  1. PHOSBLOCK [Suspect]
     Indication: HYPERPHOSPHATAEMIA
     Dosage: 7.5 G DAILY PO
     Route: 048
     Dates: start: 20050523, end: 20050801
  2. PHOSBLOCK [Suspect]
     Indication: HYPERPHOSPHATAEMIA
     Dosage: 6 G DAILY PO
     Route: 048
     Dates: start: 20050422, end: 20050522
  3. PHOSBLOCK [Suspect]
     Indication: HYPERPHOSPHATAEMIA
     Dosage: 3 G DAILY PO
     Route: 048
     Dates: start: 20050408, end: 20050421
  4. CALCIUM CARBONATE [Concomitant]
  5. SODIUM PICOSULFATE [Concomitant]
  6. SENNOSIDE [Concomitant]
  7. ASPIRIN [Concomitant]
  8. ETHYL ICOSAPENTATE [Concomitant]
  9. TRIAZOLAM [Concomitant]
  10. CALCITRIOL [Concomitant]
  11. CILNIDIPINE [Concomitant]

REACTIONS (4)
  - ACUTE MYOCARDIAL INFARCTION [None]
  - CONSTIPATION [None]
  - DYSPNOEA [None]
  - HEADACHE [None]
